FAERS Safety Report 21120015 (Version 1)
Quarter: 2022Q3

REPORT INFORMATION
  Report Type: Spontaneous
  Country: US (occurrence: US)
  Receive Date: 20220722
  Receipt Date: 20220722
  Transmission Date: 20221027
  Serious: Yes (Other)
  Sender: FDA-Public Use
  Company Number: US-MYLANLABS-2022M1079738

PATIENT
  Age: 46 Year
  Sex: Female

DRUGS (8)
  1. PREDNISONE [Suspect]
     Active Substance: PREDNISONE
     Indication: Pemphigus
     Dosage: UNK, PREDNISONE TAPER
     Route: 065
  2. MYCOPHENOLATE MOFETIL [Suspect]
     Active Substance: MYCOPHENOLATE MOFETIL
     Indication: Pemphigus
     Dosage: 1000 MILLIGRAM, BID
     Route: 065
  3. DOXYCYCLINE [Suspect]
     Active Substance: DOXYCYCLINE
     Indication: Pemphigus
     Dosage: 100 MILLIGRAM, BID
     Route: 065
  4. OCTAGAM IMMUNE GLOBULIN (HUMAN) [Suspect]
     Active Substance: HUMAN IMMUNOGLOBULIN G
     Indication: Pemphigus
     Dosage: 2 GRAM PER KILOGRAM, MONTHLY (2 G/KG DIVIDED INTO 5 CONSECUTIVE DAILY INFUSIONS)
     Route: 042
  5. OCTAGAM IMMUNE GLOBULIN (HUMAN) [Suspect]
     Active Substance: HUMAN IMMUNOGLOBULIN G
     Dosage: 12 GRAM, INFUSION RATE OF 75 ML/H
     Route: 042
  6. NIACINAMIDE [Suspect]
     Active Substance: NIACINAMIDE
     Indication: Pemphigus
     Dosage: 500 MILLIGRAM, TID
     Route: 065
  7. CALCIUM [Suspect]
     Active Substance: CALCIUM
     Indication: Pemphigus
     Dosage: UNK
     Route: 065
  8. RITUXIMAB [Concomitant]
     Active Substance: RITUXIMAB
     Indication: Pemphigus
     Dosage: UNK
     Route: 065

REACTIONS (2)
  - Drug ineffective [Unknown]
  - Off label use [Unknown]
